FAERS Safety Report 13279607 (Version 1)
Quarter: 2017Q1

REPORT INFORMATION
  Report Type: Spontaneous
  Country: US (occurrence: US)
  Receive Date: 20170228
  Receipt Date: 20170228
  Transmission Date: 20170428
  Serious: Yes (Disabling, Other)
  Sender: FDA-Public Use
  Company Number: None

PATIENT
  Age: 3 Year
  Sex: Female
  Weight: 19.8 kg

DRUGS (2)
  1. MIRALAX [Concomitant]
     Active Substance: POLYETHYLENE GLYCOL 3350
  2. PEG3350 [Suspect]
     Active Substance: POLYETHYLENE GLYCOL 3350
     Indication: FAECALOMA
     Dosage: ?          QUANTITY:1 CAP;?
     Route: 048
     Dates: start: 20151120, end: 20170218

REACTIONS (6)
  - Mood swings [None]
  - Obsessive-compulsive disorder [None]
  - Anger [None]
  - Aggression [None]
  - Alopecia [None]
  - Enamel anomaly [None]

NARRATIVE: CASE EVENT DATE: 20151201
